FAERS Safety Report 16734315 (Version 1)
Quarter: 2019Q3

REPORT INFORMATION
  Report Type: Spontaneous
  Country: US (occurrence: US)
  Receive Date: 20190823
  Receipt Date: 20190823
  Transmission Date: 20191005
  Serious: No
  Sender: FDA-Public Use
  Company Number: US-AMGEN-USASP2019133072

PATIENT
  Sex: Female

DRUGS (4)
  1. PROLIA [Suspect]
     Active Substance: DENOSUMAB
     Indication: OSTEOPOROSIS POSTMENOPAUSAL
     Dosage: UNK UNK, (1INJECTION) Q6MO
     Route: 065
     Dates: start: 2016
  2. ATENOLOL. [Concomitant]
     Active Substance: ATENOLOL
  3. AMLODIPINE [Concomitant]
     Active Substance: AMLODIPINE BESYLATE
  4. LOSARTAN. [Concomitant]
     Active Substance: LOSARTAN

REACTIONS (4)
  - Rash papular [Unknown]
  - Vulvovaginal inflammation [Unknown]
  - Rash pruritic [Unknown]
  - Stomatitis [Unknown]

NARRATIVE: CASE EVENT DATE: 20180801
